FAERS Safety Report 5137007-5 (Version None)
Quarter: 2006Q4

REPORT INFORMATION
  Report Type: 
  Country: None (occurrence: None)
  Receive Date: 20061030
  Receipt Date: 20060928
  Transmission Date: 20070319
  Serious: Yes (Life-Threatening, Hospitalization)
  Sender: FDA-Public Use
  Company Number: US-BRISTOL-MYERS SQUIBB COMPANY-13525027

PATIENT
  Age: 46 Year
  Sex: Female

DRUGS (5)
  1. ORENCIA [Suspect]
     Indication: RHEUMATOID ARTHRITIS
     Route: 042
     Dates: start: 20060927, end: 20060927
  2. NAPROSYN [Concomitant]
  3. EPINEPHRINE [Concomitant]
     Route: 058
  4. HYDROCORTISONE ACETATE [Concomitant]
     Route: 042
  5. BENADRYL [Concomitant]
     Route: 048

REACTIONS (5)
  - ANAPHYLACTIC REACTION [None]
  - ANXIETY [None]
  - GRAND MAL CONVULSION [None]
  - INSOMNIA [None]
  - RESPIRATORY DISTRESS [None]
